FAERS Safety Report 11546004 (Version 1)
Quarter: 2015Q3

REPORT INFORMATION
  Report Type: Spontaneous
  Country: DE (occurrence: DE)
  Receive Date: 20150924
  Receipt Date: 20150924
  Transmission Date: 20151125
  Serious: Yes (Other)
  Sender: FDA-Public Use
  Company Number: DE-PFIZER INC-2015317172

PATIENT
  Age: 25 Year
  Sex: Male

DRUGS (8)
  1. TETRACYCLINE [Suspect]
     Active Substance: TETRACYCLINE
     Dosage: 1000 MG, DAILY
  2. TETRACYCLINE [Suspect]
     Active Substance: TETRACYCLINE
     Dosage: 1000 MG, DAILY
  3. MINOCYCLINE [Suspect]
     Active Substance: MINOCYCLINE\MINOCYCLINE HYDROCHLORIDE
     Dosage: 300 MG, DAILY
     Dates: start: 200101
  4. MINOCYCLINE [Suspect]
     Active Substance: MINOCYCLINE\MINOCYCLINE HYDROCHLORIDE
     Indication: ACNE PUSTULAR
     Dosage: 200 MG, DAILY
     Dates: start: 1995
  5. DOXYCYCLINE HYCLATE. [Suspect]
     Active Substance: DOXYCYCLINE HYCLATE
     Dosage: 200 MG, DAILY
     Dates: start: 200008
  6. DOXYCYCLINE HYCLATE. [Suspect]
     Active Substance: DOXYCYCLINE HYCLATE
     Dosage: 100 MG, 2X/DAY
     Route: 048
  7. DOXYCYCLINE HYCLATE. [Suspect]
     Active Substance: DOXYCYCLINE HYCLATE
     Indication: ACNE PUSTULAR
     Dosage: 200 MG, DAILY
  8. TETRACYCLINE [Suspect]
     Active Substance: TETRACYCLINE
     Indication: ACNE
     Dosage: 1000 MG, DAILY

REACTIONS (1)
  - Acute febrile neutrophilic dermatosis [Recovered/Resolved]

NARRATIVE: CASE EVENT DATE: 1995
